FAERS Safety Report 7060435 (Version 7)
Quarter: 2019Q2

REPORT INFORMATION
  Report Type: Spontaneous
  Country: DK (occurrence: DK)
  Receive Date: 20090715
  Receipt Date: 20190525
  Transmission Date: 20190711
  Serious: Yes (Death, Other)
  Sender: FDA-Public Use
  Company Number: GXKR2009DK07838

PATIENT
  Age: 0 Day
  Sex: Male

DRUGS (2)
  1. FLUOXETINE [Suspect]
     Active Substance: FLUOXETINE HYDROCHLORIDE
     Dosage: 20 MG, QD
     Route: 064
     Dates: end: 20080821
  2. FLUOXETINE [Suspect]
     Active Substance: FLUOXETINE HYDROCHLORIDE
     Indication: DEPRESSION
     Dosage: UNK
     Route: 063

REACTIONS (9)
  - Cardiovascular disorder [Fatal]
  - Exposure via breast milk [Unknown]
  - Cerebral disorder [Fatal]
  - Premature baby [Fatal]
  - Jaundice neonatal [Fatal]
  - Foetal exposure during pregnancy [Unknown]
  - Low birth weight baby [Fatal]
  - Neonatal anoxia [Fatal]
  - Drug withdrawal syndrome neonatal [Unknown]

NARRATIVE: CASE EVENT DATE: 20080821
